FAERS Safety Report 6637866-0 (Version None)
Quarter: 2010Q1

REPORT INFORMATION
  Report Type: 
  Country: None (occurrence: None)
  Receive Date: 20100315
  Receipt Date: 20100315
  Transmission Date: 20100710
  Serious: Yes (Life-Threatening, Other)
  Sender: FDA-Public Use
  Company Number: None

PATIENT
  Age: 53 Year
  Sex: Female
  Weight: 61.2356 kg

DRUGS (1)
  1. LOVAZA [Suspect]
     Indication: BLOOD TRIGLYCERIDES DECREASED
     Dosage: 4 GEL CAPS DAILY 4 TIMES DAY PO
     Route: 048
     Dates: start: 20100304, end: 20100305

REACTIONS (6)
  - CONFUSIONAL STATE [None]
  - CONVULSION [None]
  - DIZZINESS [None]
  - FEELING ABNORMAL [None]
  - HEADACHE [None]
  - INSOMNIA [None]
